FAERS Safety Report 7472525-6 (Version None)
Quarter: 2011Q1

REPORT INFORMATION
  Report Type: 
  Country: None (occurrence: None)
  Receive Date: 20110302
  Receipt Date: 20101217
  Transmission Date: 20110831
  Serious: Yes (Death, Hospitalization)
  Sender: FDA-Public Use
  Company Number: 163-21880-10101955

PATIENT
  Age: 54 Year
  Sex: Male

DRUGS (3)
  1. REVLIMID [Suspect]
     Indication: AMYLOIDOSIS
     Dosage: 5 MG, 1 IN 1 D, PO, 2.5 MG, 1 IN 2 D, PO, 2.5 MG, 1 IN 2 D, PO
     Route: 048
     Dates: start: 20100901, end: 20101101
  2. REVLIMID [Suspect]
     Indication: AMYLOIDOSIS
     Dosage: 5 MG, 1 IN 1 D, PO, 2.5 MG, 1 IN 2 D, PO, 2.5 MG, 1 IN 2 D, PO
     Route: 048
     Dates: start: 20100701, end: 20101101
  3. REVLIMID [Suspect]
     Indication: AMYLOIDOSIS
     Dosage: 5 MG, 1 IN 1 D, PO, 2.5 MG, 1 IN 2 D, PO, 2.5 MG, 1 IN 2 D, PO
     Route: 048
     Dates: start: 20100701

REACTIONS (4)
  - AMYLOIDOSIS [None]
  - HYPOTENSION [None]
  - DIZZINESS [None]
  - DISEASE PROGRESSION [None]
